FAERS Safety Report 4824166-4 (Version None)
Quarter: 2005Q4

REPORT INFORMATION
  Report Type: 
  Country: None (occurrence: None)
  Receive Date: 20051108
  Receipt Date: 20051031
  Transmission Date: 20060501
  Serious: Yes (Other)
  Sender: FDA-Public Use
  Company Number: 200513220JP

PATIENT
  Age: 70 Year
  Sex: Female

DRUGS (9)
  1. ARAVA [Suspect]
     Dosage: 100 MG/DAY PO
     Route: 048
     Dates: start: 20050409, end: 20050411
  2. ARAVA [Suspect]
     Indication: RHEUMATOID ARTHRITIS
     Dosage: 20 MG/DAY PO
     Route: 048
     Dates: start: 20050412
  3. BREDININ [Concomitant]
  4. MEDROL [Concomitant]
  5. MEDROL [Concomitant]
  6. ONEALFA [Concomitant]
  7. ACTONEL [Concomitant]
  8. VOLTAREN [Concomitant]
  9. MUCOSTA [Concomitant]

REACTIONS (7)
  - ALANINE AMINOTRANSFERASE INCREASED [None]
  - ALOPECIA [None]
  - ASPARTATE AMINOTRANSFERASE INCREASED [None]
  - COUGH [None]
  - DYSPNOEA [None]
  - HEPATIC FUNCTION ABNORMAL [None]
  - PALPITATIONS [None]
